FAERS Safety Report 18475611 (Version 1)
Quarter: 2020Q4

REPORT INFORMATION
  Report Type: Spontaneous
  Country: PK (occurrence: PK)
  Receive Date: 20201106
  Receipt Date: 20201106
  Transmission Date: 20210114
  Serious: Yes (Life-Threatening, Hospitalization, Other)
  Sender: FDA-Public Use
  Company Number: PK-AVION PHARMACEUTICALS, LLC-2093682

PATIENT
  Age: 29 Year
  Sex: Female

DRUGS (12)
  1. MOXIFLOXACIN. [Suspect]
     Active Substance: MOXIFLOXACIN
     Route: 048
     Dates: start: 20200221, end: 20200326
  2. PYRAZINAMIDE. [Suspect]
     Active Substance: PYRAZINAMIDE
     Route: 048
     Dates: start: 20200221, end: 20200326
  3. PYRIDOXINE HYDROCHLORIDE. [Suspect]
     Active Substance: PYRIDOXINE HYDROCHLORIDE
     Route: 048
     Dates: start: 20200221, end: 20200326
  4. DELAMANID [Suspect]
     Active Substance: DELAMANID
     Route: 048
     Dates: start: 20200414
  5. MEFENAMIC ACID. [Suspect]
     Active Substance: MEFENAMIC ACID
     Indication: GENITAL PAIN
     Route: 048
     Dates: start: 20200303, end: 20200310
  6. TOBRAMYCIN AND DEXAMETHASONE [Suspect]
     Active Substance: DEXAMETHASONE\TOBRAMYCIN
     Route: 001
     Dates: start: 20200303, end: 20200311
  7. DELAMANID [Suspect]
     Active Substance: DELAMANID
     Route: 048
     Dates: start: 20200420
  8. CLOFAZIMINE [Suspect]
     Active Substance: CLOFAZIMINE
     Route: 048
     Dates: start: 20200420
  9. IMIPENEM [Suspect]
     Active Substance: IMIPENEM
     Route: 042
     Dates: start: 20200405, end: 20200413
  10. DELAMANID TABLET [Suspect]
     Active Substance: DELAMANID
     Route: 048
     Dates: start: 20200221, end: 20200326
  11. CLOFAZIMINE [Suspect]
     Active Substance: CLOFAZIMINE
     Route: 048
     Dates: start: 20200221, end: 20200326
  12. MOXIFLOXACIN. [Suspect]
     Active Substance: MOXIFLOXACIN
     Route: 048

REACTIONS (3)
  - Otitis media [Recovered/Resolved]
  - Drug reaction with eosinophilia and systemic symptoms [Recovering/Resolving]
  - Seizure [Recovered/Resolved]

NARRATIVE: CASE EVENT DATE: 20200303
